FAERS Safety Report 11724094 (Version 1)
Quarter: 2015Q4

REPORT INFORMATION
  Report Type: Spontaneous
  Country: US (occurrence: US)
  Receive Date: 20151111
  Receipt Date: 20151111
  Transmission Date: 20160304
  Serious: Yes (Hospitalization, Other)
  Sender: FDA-Public Use
  Company Number: US-ELI_LILLY_AND_COMPANY-US201510010172

PATIENT
  Sex: Male

DRUGS (1)
  1. TRULICITY [Suspect]
     Active Substance: DULAGLUTIDE
     Indication: PRODUCT USED FOR UNKNOWN INDICATION
     Dosage: UNK, UNKNOWN
     Route: 065

REACTIONS (8)
  - Pancreatitis [Unknown]
  - Pneumonia [Unknown]
  - Vomiting [Unknown]
  - Coma [Unknown]
  - Gait disturbance [Unknown]
  - Fatigue [Unknown]
  - Dysstasia [Unknown]
  - Pain [Unknown]
